FAERS Safety Report 6376981-6 (Version None)
Quarter: 2009Q3

REPORT INFORMATION
  Report Type: 
  Country: None (occurrence: None)
  Receive Date: 20090925
  Receipt Date: 20090915
  Transmission Date: 20100115
  Serious: Yes (Other)
  Sender: FDA-Public Use
  Company Number: IN-PFIZER INC-2009250530

PATIENT

DRUGS (2)
  1. DOLONEX [Suspect]
     Indication: PYREXIA
     Dosage: 20 MG, 1X/DAY
     Route: 048
     Dates: start: 20090715, end: 20090716
  2. DOLONEX [Suspect]
     Indication: PAIN

REACTIONS (3)
  - MOUTH ULCERATION [None]
  - RASH GENERALISED [None]
  - SWELLING FACE [None]
